FAERS Safety Report 9162261 (Version 1)
Quarter: 2013Q1

REPORT INFORMATION
  Report Type: Spontaneous
  Country: IL (occurrence: IL)
  Receive Date: 20130314
  Receipt Date: 20130314
  Transmission Date: 20140127
  Serious: Yes (Hospitalization)
  Sender: FDA-Public Use
  Company Number: PHHY2013IL024606

PATIENT
  Age: 67 Year
  Sex: Male

DRUGS (1)
  1. ACLASTA [Suspect]
     Indication: OSTEOPOROSIS
     Dosage: 5 MG/100ML YEARLY
     Route: 042
     Dates: start: 20120402

REACTIONS (3)
  - Fall [Unknown]
  - Hip fracture [Unknown]
  - Bone disorder [Unknown]
